FAERS Safety Report 8968765 (Version 1)
Quarter: 2012Q4

REPORT INFORMATION
  Report Type: 
  Country: US (occurrence: US)
  Receive Date: 20121218
  Receipt Date: 20121218
  Transmission Date: 20130627
  Serious: No
  Sender: FDA-Public Use
  Company Number: US-BRISTOL-MYERS SQUIBB COMPANY-16731655

PATIENT
  Age: 63 Year
  Sex: Male

DRUGS (2)
  1. ABILIFY [Suspect]
     Indication: DEPRESSION
     Dosage: in his 2nd month
  2. MYSOLINE [Concomitant]

REACTIONS (3)
  - Dyskinesia [Unknown]
  - Tremor [Unknown]
  - Asthenia [Unknown]
